FAERS Safety Report 8841400 (Version 1)
Quarter: 2012Q4

REPORT INFORMATION
  Report Type: 
  Country: CN (occurrence: CN)
  Receive Date: 20121015
  Receipt Date: 20121015
  Transmission Date: 20130627
  Serious: Yes (Other)
  Sender: FDA-Public Use
  Company Number: CN-BAYER-2012-106550

PATIENT
  Age: 100 Year
  Sex: Male

DRUGS (1)
  1. MOXIFLOXACIN IV [Suspect]
     Dosage: 250 ml, QD
     Route: 042
     Dates: start: 20110517, end: 20110521

REACTIONS (1)
  - Enteritis [Recovering/Resolving]
